FAERS Safety Report 7337679-0 (Version None)
Quarter: 2011Q1

REPORT INFORMATION
  Report Type: 
  Country: None (occurrence: None)
  Receive Date: 20110303
  Receipt Date: 20110303
  Transmission Date: 20110831
  Serious: No
  Sender: FDA-Public Use
  Company Number: None

PATIENT
  Sex: Male
  Weight: 102.5129 kg

DRUGS (2)
  1. SIMVASTATIN [Suspect]
     Dosage: 20MG 1 PO QHS PO
     Route: 048
  2. LIPITOR [Suspect]

REACTIONS (1)
  - MUSCLE FATIGUE [None]
